FAERS Safety Report 6702901-8 (Version None)
Quarter: 2010Q2

REPORT INFORMATION
  Report Type: 
  Country: None (occurrence: None)
  Receive Date: 20100429
  Receipt Date: 20100429
  Transmission Date: 20101027
  Serious: Yes (Other)
  Sender: FDA-Public Use
  Company Number: None

PATIENT
  Sex: Female

DRUGS (1)
  1. OMEPRAZOLE [Suspect]
     Indication: DYSPEPSIA
     Dosage: 2 CAPSULES DAILY
     Dates: start: 20100331, end: 20100409

REACTIONS (2)
  - DISEASE RECURRENCE [None]
  - PRODUCT SUBSTITUTION ISSUE [None]
